FAERS Safety Report 18535574 (Version 2)
Quarter: 2021Q1

REPORT INFORMATION
  Report Type: Spontaneous
  Country: US (occurrence: US)
  Receive Date: 20201123
  Receipt Date: 20210322
  Transmission Date: 20210419
  Serious: Yes (Other)
  Sender: FDA-Public Use
  Company Number: US-ENDO PHARMACEUTICALS INC-2020-007491

PATIENT
  Age: 48 Year
  Sex: Male
  Weight: 68.03 kg

DRUGS (2)
  1. XIAFLEX [Suspect]
     Active Substance: COLLAGENASE CLOSTRIDIUM HISTOLYTICUM
     Indication: PEYRONIE^S DISEASE
     Dosage: 0.58 MG, CYCLE 1, INJECTION 1
     Route: 026
     Dates: start: 20201019
  2. XIAFLEX [Suspect]
     Active Substance: COLLAGENASE CLOSTRIDIUM HISTOLYTICUM
     Dosage: 0.58 MG, CYCLE 1, INJECTION 2
     Route: 026
     Dates: start: 20201021

REACTIONS (1)
  - Fracture of penis [Recovering/Resolving]

NARRATIVE: CASE EVENT DATE: 20201024
